FAERS Safety Report 10071262 (Version 1)
Quarter: 2014Q2

REPORT INFORMATION
  Report Type: Spontaneous
  Country: US (occurrence: US)
  Receive Date: 20140410
  Receipt Date: 20140410
  Transmission Date: 20141212
  Serious: Yes (Other)
  Sender: FDA-Public Use
  Company Number: CHPA2014US005082

PATIENT
  Sex: Female

DRUGS (3)
  1. GAS-X UNKNOWN FORMULA [Suspect]
     Indication: ABDOMINAL DISCOMFORT
     Route: 048
  2. GAS-X UNKNOWN FORMULA [Suspect]
     Indication: OFF LABEL USE
  3. ACETYLSALICYLIC ACID [Suspect]

REACTIONS (3)
  - Haematochezia [Unknown]
  - Abdominal discomfort [Unknown]
  - Incorrect dosage administered [Unknown]
